FAERS Safety Report 20363843 (Version 1)
Quarter: 2022Q1

REPORT INFORMATION
  Report Type: Spontaneous
  Country: US (occurrence: US)
  Receive Date: 20220121
  Receipt Date: 20220121
  Transmission Date: 20220423
  Serious: Yes (Hospitalization, Other)
  Sender: FDA-Public Use
  Company Number: US-INSUD PHARMA-2201US00141

PATIENT

DRUGS (1)
  1. TESTOSTERONE [Suspect]
     Active Substance: TESTOSTERONE
     Indication: Gender dysphoria
     Dosage: UNK
     Route: 065

REACTIONS (9)
  - Suicidal ideation [Unknown]
  - Depression [Not Recovered/Not Resolved]
  - Mental impairment [Unknown]
  - Affect lability [Unknown]
  - Disorientation [Unknown]
  - Anxiety [Not Recovered/Not Resolved]
  - Anger [Unknown]
  - Self-destructive behaviour [Unknown]
  - Euphoric mood [Recovered/Resolved]
